FAERS Safety Report 5423097-9 (Version None)
Quarter: 2007Q3

REPORT INFORMATION
  Report Type: 
  Country: None (occurrence: None)
  Receive Date: 20070821
  Receipt Date: 20070807
  Transmission Date: 20080115
  Serious: Yes (Hospitalization)
  Sender: FDA-Public Use
  Company Number: 07IN000907

PATIENT
  Age: 16 Year
  Sex: Female

DRUGS (1)
  1. LITHIUM CARBONATE [Suspect]
     Indication: DRUG THERAPY
     Dosage: 1200 MG, QD
     Dates: start: 20050101, end: 20051101

REACTIONS (16)
  - BLOOD UREA ABNORMAL [None]
  - BLOOD UREA INCREASED [None]
  - CATATONIA [None]
  - DECREASED APPETITE [None]
  - DEHYDRATION [None]
  - DIET REFUSAL [None]
  - HYPERREFLEXIA [None]
  - IMMOBILE [None]
  - MUTISM [None]
  - NEGATIVISM [None]
  - STARING [None]
  - STUPOR [None]
  - THERAPEUTIC AGENT TOXICITY [None]
  - TREMOR [None]
  - WAXY FLEXIBILITY [None]
  - WHITE BLOOD CELL COUNT INCREASED [None]
